FAERS Safety Report 7652653-2 (Version None)
Quarter: 2011Q3

REPORT INFORMATION
  Report Type: 
  Country: None (occurrence: None)
  Receive Date: 20110803
  Receipt Date: 20110721
  Transmission Date: 20111222
  Serious: No
  Sender: FDA-Public Use
  Company Number: US-B.I. PHARMACEUTICALS,INC./RIDGEFIELD-2011-BP-18412BP

PATIENT
  Sex: Female

DRUGS (9)
  1. ADVAIR DISKUS 100/50 [Concomitant]
     Indication: ASTHMA
     Dosage: 1 PUF
     Route: 055
  2. ALLEGRA D 24 HOUR [Concomitant]
     Indication: HYPERSENSITIVITY
     Route: 048
  3. NASONEX [Concomitant]
     Indication: HYPERSENSITIVITY
     Dosage: 1 PUF
  4. EVISTA [Concomitant]
     Indication: OSTEOPOROSIS
     Dosage: 60 MG
     Route: 048
  5. PRADAXA [Suspect]
     Indication: ATRIAL FIBRILLATION
     Dosage: 300 MG
     Route: 048
     Dates: start: 20110715, end: 20110716
  6. ASPIRIN [Concomitant]
     Indication: ATRIAL FIBRILLATION
     Dosage: 81 MG
     Route: 048
  7. SINGULAIR [Concomitant]
     Indication: HYPERSENSITIVITY
     Dosage: 10 ML
     Route: 048
  8. AMBIEN [Concomitant]
     Indication: INSOMNIA
     Dosage: 5 MG
     Route: 048
  9. VELCADE [Concomitant]
     Indication: MULTIPLE MYELOMA
     Route: 042

REACTIONS (3)
  - VOMITING [None]
  - CHEST PAIN [None]
  - PAIN [None]
